FAERS Safety Report 6979761 (Version 23)
Quarter: 2014Q1

REPORT INFORMATION
  Report Type: Spontaneous
  Country: US (occurrence: US)
  Receive Date: 20090428
  Receipt Date: 20140228
  Transmission Date: 20141002
  Serious: Yes (Hospitalization, Other)
  Sender: FDA-Public Use
  Company Number: PHEH2009US03892

PATIENT
  Age: 61 Year
  Sex: Male
  Weight: 86.62 kg

DRUGS (21)
  1. AREDIA [Suspect]
     Indication: PLASMA CELL MYELOMA
     Route: 042
     Dates: start: 200612
  2. ZOMETA [Suspect]
     Route: 042
  3. VITAMIN C [Concomitant]
  4. VITAMIN B COMPLEX [Concomitant]
  5. CELEBREX [Concomitant]
  6. TRENTAL ^ALBERT-ROUSSEL^ [Concomitant]
  7. VELCADE [Concomitant]
  8. VICODIN [Concomitant]
  9. VITAMIN D [Concomitant]
  10. AVELOX [Concomitant]
  11. ALEVE                              /00256202/ [Concomitant]
  12. LYSINE [Concomitant]
  13. DIFLUCAN [Concomitant]
  14. ADVIL                              /00044201/ [Concomitant]
  15. MOTRIN [Concomitant]
  16. EPOGEN [Concomitant]
  17. CEFOTAXIME [Concomitant]
  18. DOXYCYCLINE [Concomitant]
  19. ALBUTEROL [Concomitant]
  20. LACTOBACILLUS [Concomitant]
  21. HEPARIN [Concomitant]

REACTIONS (158)
  - Pneumonia haemophilus [Unknown]
  - Empyema [Unknown]
  - Osteonecrosis of jaw [Unknown]
  - General physical health deterioration [Unknown]
  - Pain [Unknown]
  - Anxiety [Unknown]
  - Mucosal inflammation [Unknown]
  - Exposed bone in jaw [Unknown]
  - Oral pain [Unknown]
  - Tooth abscess [Unknown]
  - Gingival swelling [Unknown]
  - Mouth ulceration [Unknown]
  - Anhedonia [Unknown]
  - Pain in jaw [Unknown]
  - Periodontal disease [Unknown]
  - Disability [Unknown]
  - Pulmonary valve stenosis [Unknown]
  - Osteoarthritis [Unknown]
  - Neuropathy peripheral [Unknown]
  - Hypoaesthesia [Unknown]
  - Paraesthesia [Unknown]
  - Muscular weakness [Recovering/Resolving]
  - Neutropenia [Unknown]
  - Upper respiratory tract infection [Recovering/Resolving]
  - Renal failure chronic [Unknown]
  - Blood creatinine increased [Unknown]
  - Enterovesical fistula [Unknown]
  - Gastritis erosive [Unknown]
  - Hiatus hernia [Unknown]
  - Rectal polyp [Unknown]
  - Haemorrhoids [Unknown]
  - Nasal septum deviation [Unknown]
  - Tendonitis [Unknown]
  - Pain in extremity [Unknown]
  - Arthropod bite [Recovering/Resolving]
  - Hypergammaglobulinaemia [Unknown]
  - Dyspnoea [Unknown]
  - Fatigue [Unknown]
  - Arthralgia [Unknown]
  - Anaemia [Unknown]
  - Spinal osteoarthritis [Unknown]
  - Intervertebral disc degeneration [Unknown]
  - Scoliosis [Unknown]
  - Faeces discoloured [Unknown]
  - Syncope [Unknown]
  - Pleural effusion [Unknown]
  - Atelectasis [Unknown]
  - Meniscus injury [Unknown]
  - Joint crepitation [Unknown]
  - Joint dislocation [Unknown]
  - Bacterial infection [Unknown]
  - Streptococcal infection [Unknown]
  - Erythema [Unknown]
  - Osteomyelitis [Unknown]
  - Sinusitis [Unknown]
  - Headache [Unknown]
  - Diverticulitis [Unknown]
  - Petechiae [Unknown]
  - Serositis [Unknown]
  - Body tinea [Unknown]
  - Dermatitis contact [Unknown]
  - Myalgia [Unknown]
  - Cystitis [Unknown]
  - Cystitis interstitial [Unknown]
  - Nocturia [Unknown]
  - Haematuria [Unknown]
  - Faecaluria [Unknown]
  - Migraine [Unknown]
  - Large intestine polyp [Unknown]
  - Inguinal hernia [Unknown]
  - Pneumonia klebsiella [Unknown]
  - Pyrexia [Unknown]
  - Dysphonia [Unknown]
  - Chills [Unknown]
  - Cough [Unknown]
  - Pyogenic granuloma [Unknown]
  - Vocal cord disorder [Unknown]
  - Thrombocytopenia [Unknown]
  - Hyponatraemia [Unknown]
  - Liver function test abnormal [Recovered/Resolved]
  - Hypokalaemia [Unknown]
  - Left ventricular hypertrophy [Unknown]
  - Mitral valve prolapse [Unknown]
  - Mitral valve incompetence [Unknown]
  - Atrial septal defect [Unknown]
  - Aortic disorder [Unknown]
  - Aortic valve sclerosis [Unknown]
  - Tricuspid valve incompetence [Unknown]
  - Coronary artery disease [Unknown]
  - Chest pain [Unknown]
  - Radiculopathy [Unknown]
  - Compression fracture [Unknown]
  - Muscle atrophy [Unknown]
  - Bone lesion [Unknown]
  - Hepatitis [Unknown]
  - Joint swelling [Unknown]
  - Osteolysis [Unknown]
  - Bone disorder [Unknown]
  - Spinal compression fracture [Unknown]
  - Pathological fracture [Unknown]
  - Muscle spasms [Unknown]
  - Osteosclerosis [Unknown]
  - Spondylolisthesis [Unknown]
  - Exostosis [Unknown]
  - Vascular calcification [Unknown]
  - Bronchospasm [Unknown]
  - Urinary tract infection [Unknown]
  - Pollakiuria [Unknown]
  - Dysuria [Unknown]
  - Ear pain [Unknown]
  - Measles [Unknown]
  - Mumps [Unknown]
  - Back pain [Unknown]
  - Oedema peripheral [Unknown]
  - Abdominal pain [Unknown]
  - Diarrhoea [Unknown]
  - Cellulitis [Unknown]
  - Primary sequestrum [Unknown]
  - Abscess jaw [Unknown]
  - Dental caries [Unknown]
  - Tooth infection [Unknown]
  - Bone swelling [Unknown]
  - Joint effusion [Unknown]
  - Synovial cyst [Unknown]
  - Intervertebral disc protrusion [Unknown]
  - Spinal column stenosis [Unknown]
  - Hypertrophy [Unknown]
  - Vertebral foraminal stenosis [Unknown]
  - Swelling face [Unknown]
  - Mass [Unknown]
  - Trismus [Unknown]
  - Tooth loss [Unknown]
  - Lymphadenopathy [Unknown]
  - Sinus disorder [Unknown]
  - Rotator cuff syndrome [Unknown]
  - Purulent discharge [Unknown]
  - Carotid arteriosclerosis [Unknown]
  - Muscle strain [Unknown]
  - Hypoaesthesia oral [Unknown]
  - Joint ankylosis [Unknown]
  - Abscess neck [Unknown]
  - Leukopenia [Unknown]
  - Joint stiffness [Unknown]
  - Gingival bleeding [Unknown]
  - Anisocytosis [Unknown]
  - Constipation [Unknown]
  - Jaw fracture [Unknown]
  - Glaucoma [Unknown]
  - Cataract [Unknown]
  - Cardiomegaly [Unknown]
  - Nasal congestion [Unknown]
  - Rhinorrhoea [Unknown]
  - Intervertebral disc disorder [Unknown]
  - Sciatica [Unknown]
  - Skin ulcer [Unknown]
  - Ligament sprain [Unknown]
  - Pubis fracture [Unknown]
  - Ventricular hypokinesia [Unknown]
